FAERS Safety Report 6987808-3 (Version None)
Quarter: 2010Q3

REPORT INFORMATION
  Report Type: 
  Country: None (occurrence: None)
  Receive Date: 20100916
  Receipt Date: 20100908
  Transmission Date: 20110219
  Serious: Yes (Hospitalization)
  Sender: FDA-Public Use
  Company Number: PHHY2010FR60000

PATIENT
  Sex: Female

DRUGS (7)
  1. LEPONEX [Suspect]
     Dosage: 100 MG
     Dates: start: 20100114
  2. LASIX [Concomitant]
     Indication: HYPERTENSION
     Dosage: 60 MG
     Route: 048
  3. ALLOPURINOL [Concomitant]
     Dosage: UNK
     Route: 048
  4. HEMIGOXINE NATIVELLE [Concomitant]
     Dosage: UNK
     Route: 048
  5. PREVISCAN [Concomitant]
     Indication: ATRIAL FIBRILLATION
     Dosage: 10 MG, QD
     Route: 048
  6. ALDACTONE [Concomitant]
     Indication: HYPERTENSION
     Dosage: 1 DF, QD
     Route: 048
  7. INSULATARD [Concomitant]
     Dosage: UNK
     Route: 058

REACTIONS (9)
  - ACCIDENTAL EXPOSURE [None]
  - ALTERED STATE OF CONSCIOUSNESS [None]
  - BLADDER CATHETERISATION [None]
  - BRADYCARDIA [None]
  - DISTURBANCE IN ATTENTION [None]
  - DYSPNOEA [None]
  - TACHYCARDIA [None]
  - TACHYPNOEA [None]
  - URINARY RETENTION [None]
